FAERS Safety Report 9464193 (Version 1)
Quarter: 2013Q3

REPORT INFORMATION
  Report Type: Spontaneous
  Country: US (occurrence: US)
  Receive Date: 20130819
  Receipt Date: 20130819
  Transmission Date: 20140515
  Serious: Yes (Hospitalization)
  Sender: FDA-Public Use
  Company Number: US-BAYER-2013-099330

PATIENT
  Age: 32 Year
  Sex: Female

DRUGS (3)
  1. YASMIN [Suspect]
     Indication: DYSFUNCTIONAL UTERINE BLEEDING
  2. AVELOX [Concomitant]
  3. VITAMIN K [Concomitant]
     Indication: PROPHYLAXIS

REACTIONS (5)
  - Pelvic venous thrombosis [None]
  - Pulmonary embolism [None]
  - Vena cava thrombosis [None]
  - Deep vein thrombosis [None]
  - Thrombophlebitis superficial [None]
